FAERS Safety Report 8049530-4 (Version None)
Quarter: 2012Q1

REPORT INFORMATION
  Report Type: 
  Country: None (occurrence: None)
  Receive Date: 20120117
  Receipt Date: 20120111
  Transmission Date: 20120608
  Serious: Yes (Hospitalization)
  Sender: FDA-Public Use
  Company Number: AT-AMGEN-AUTCT2012002157

PATIENT
  Age: 70 Year
  Sex: Female

DRUGS (3)
  1. BLINDED DENOSUMAB [Suspect]
     Indication: BREAST CANCER
     Dosage: UNK UNK, Q6MO
     Route: 058
     Dates: start: 20110706
  2. BLINDED DENOSUMAB [Suspect]
     Dosage: UNK UNK, Q6MO
     Route: 058
     Dates: start: 20110706
  3. PLACEBO [Suspect]
     Indication: BREAST CANCER
     Dosage: UNK UNK, Q6MO
     Route: 058
     Dates: start: 20110706

REACTIONS (1)
  - ANKLE FRACTURE [None]
